FAERS Safety Report 7207642-9 (Version None)
Quarter: 2011Q1

REPORT INFORMATION
  Report Type: 
  Country: None (occurrence: None)
  Receive Date: 20110103
  Receipt Date: 20101224
  Transmission Date: 20110831
  Serious: Yes (Death, Hospitalization)
  Sender: FDA-Public Use
  Company Number: JP-PFIZER INC-2010146076

PATIENT
  Age: 82 Year
  Sex: Male

DRUGS (12)
  1. CONIEL [Concomitant]
     Dosage: 2 MG, UNK
     Dates: start: 20100427
  2. ISONIAZID [Suspect]
     Dosage: 50 MG, UNK
     Dates: start: 20100427, end: 20100929
  3. PARIET [Concomitant]
     Dosage: 10 MG, UNK
     Dates: start: 20100427
  4. PREDNISOLONE [Suspect]
     Dosage: 1 MG, UNK
     Dates: start: 20100525
  5. LASIX [Concomitant]
     Dosage: 80 MG, UNK
     Dates: start: 20100427
  6. OLMESARTAN MEDOXOMIL [Suspect]
     Dosage: 20 MG, 1X/DAY
     Route: 048
     Dates: start: 20100526, end: 20100929
  7. OLMESARTAN MEDOXOMIL [Suspect]
     Dosage: 10 MG, 1X/DAY
     Dates: start: 20100930, end: 20101103
  8. PREDNISOLONE [Suspect]
     Dosage: 5 MG, UNK
     Dates: start: 20100427
  9. AMOBAN [Suspect]
     Dosage: 7.5 MG, UNK
     Dates: start: 20100427
  10. BACTRIM [Suspect]
     Dosage: 1 DF, UNK
     Dates: start: 20100427
  11. ALLOZYM [Suspect]
     Dosage: 200 MG, UNK
     Dates: start: 20100624
  12. ESPO [Concomitant]
     Dosage: 1/7A
     Route: 058
     Dates: start: 20100803

REACTIONS (1)
  - PNEUMONIA [None]
